FAERS Safety Report 5482922-6 (Version None)
Quarter: 2007Q4

REPORT INFORMATION
  Report Type: 
  Country: None (occurrence: None)
  Receive Date: 20071011
  Receipt Date: 20070927
  Transmission Date: 20080405
  Serious: Yes (Hospitalization, Disabling, Other)
  Sender: FDA-Public Use
  Company Number: US-ELI_LILLY_AND_COMPANY-US200704000263

PATIENT
  Sex: Female

DRUGS (1)
  1. STRATTERA [Suspect]
     Indication: ATTENTION DEFICIT/HYPERACTIVITY DISORDER
     Dosage: 40 MG, 2/D
     Route: 048
     Dates: start: 20060101

REACTIONS (5)
  - BLOOD HOMOCYSTEINE INCREASED [None]
  - CEREBRAL HYPOPERFUSION [None]
  - HAEMORRHAGIC STROKE [None]
  - HEMIPLEGIA [None]
  - OVERDOSE [None]
